FAERS Safety Report 21488157 (Version 1)
Quarter: 2022Q4

REPORT INFORMATION
  Report Type: Spontaneous
  Country: US (occurrence: None)
  Receive Date: 20221020
  Receipt Date: 20221020
  Transmission Date: 20230112
  Serious: Yes (Hospitalization)
  Sender: FDA-Public Use
  Company Number: None

PATIENT
  Age: 57 Year
  Sex: Female
  Weight: 75.6 kg

DRUGS (2)
  1. XELODA [Suspect]
     Active Substance: CAPECITABINE
     Dates: end: 20221017
  2. MITOMYCIN C [Suspect]
     Active Substance: MITOMYCIN
     Dates: end: 20220926

REACTIONS (5)
  - Carotid artery occlusion [None]
  - Blindness [None]
  - Dyspnoea [None]
  - Hypoaesthesia [None]
  - Confusional state [None]

NARRATIVE: CASE EVENT DATE: 20221018
